FAERS Safety Report 6512317-5 (Version None)
Quarter: 2009Q4

REPORT INFORMATION
  Report Type: 
  Country: None (occurrence: None)
  Receive Date: 20091222
  Receipt Date: 20090629
  Transmission Date: 20100525
  Serious: No
  Sender: FDA-Public Use
  Company Number: US-ASTRAZENECA-2009UW18118

PATIENT
  Age: 31220 Day
  Sex: Male
  Weight: 68.9 kg

DRUGS (2)
  1. CRESTOR [Suspect]
     Indication: BLOOD CHOLESTEROL
     Route: 048
  2. CRESTOR [Suspect]
     Route: 048

REACTIONS (2)
  - GAIT DISTURBANCE [None]
  - MUSCLE SWELLING [None]
